FAERS Safety Report 5002543-9 (Version None)
Quarter: 2006Q2

REPORT INFORMATION
  Report Type: 
  Country: None (occurrence: None)
  Receive Date: 20060515
  Receipt Date: 20060307
  Transmission Date: 20061013
  Serious: Yes (Hospitalization, Disabling)
  Sender: FDA-Public Use
  Company Number: US-MERCK-0603USA01330

PATIENT
  Age: 59 Year
  Sex: Male
  Weight: 83 kg

DRUGS (3)
  1. VIOXX [Suspect]
     Indication: ARTHRITIS
     Route: 048
     Dates: start: 20010101, end: 20040301
  2. SYNTHROID [Concomitant]
     Route: 065
     Dates: start: 20010101, end: 20040301
  3. [THERAPY UNSPECIFIED] [Concomitant]
     Indication: HYPERTENSION
     Route: 065
     Dates: start: 20010101, end: 20040301

REACTIONS (1)
  - MYOCARDIAL INFARCTION [None]
